FAERS Safety Report 12493040 (Version 1)
Quarter: 2016Q2

REPORT INFORMATION
  Report Type: Spontaneous
  Country: US (occurrence: US)
  Receive Date: 20160623
  Receipt Date: 20160623
  Transmission Date: 20160815
  Serious: Yes (Hospitalization)
  Sender: FDA-Public Use
  Company Number: US-EMD SERONO-8090676

PATIENT
  Age: 58 Year
  Sex: Female

DRUGS (2)
  1. REBIF [Suspect]
     Active Substance: INTERFERON BETA-1A
     Indication: MULTIPLE SCLEROSIS
     Dates: end: 201412
  2. SOLU-MEDROL [Suspect]
     Active Substance: METHYLPREDNISOLONE SODIUM SUCCINATE
     Indication: MULTIPLE SCLEROSIS RELAPSE
     Dates: start: 201411

REACTIONS (3)
  - Multiple sclerosis relapse [Recovered/Resolved]
  - Dyspnoea [Recovered/Resolved]
  - Decreased appetite [Unknown]

NARRATIVE: CASE EVENT DATE: 201411
